FAERS Safety Report 5943194-9 (Version None)
Quarter: 2008Q4

REPORT INFORMATION
  Report Type: 
  Country: None (occurrence: None)
  Receive Date: 20081106
  Receipt Date: 20081027
  Transmission Date: 20090506
  Serious: Yes (Hospitalization)
  Sender: FDA-Public Use
  Company Number: B0532375A

PATIENT
  Age: 53 Year
  Sex: Female
  Weight: 79 kg

DRUGS (2)
  1. LAPATINIB [Suspect]
     Dosage: 1250MG PER DAY
     Route: 048
     Dates: start: 20071009
  2. CAPECITABINE [Suspect]
     Dosage: 2650MG PER DAY
     Route: 048
     Dates: start: 20071009

REACTIONS (4)
  - HEMICEPHALALGIA [None]
  - HEMIPARESIS [None]
  - ISCHAEMIC STROKE [None]
  - VOMITING [None]
